FAERS Safety Report 11026414 (Version 3)
Quarter: 2016Q4

REPORT INFORMATION
  Report Type: Spontaneous
  Country: US (occurrence: US)
  Receive Date: 20150414
  Receipt Date: 20161220
  Transmission Date: 20170206
  Serious: Yes (Hospitalization, Other)
  Sender: FDA-Public Use
  Company Number: US-UCBSA-091278

PATIENT
  Sex: Female

DRUGS (10)
  1. XYREM [Suspect]
     Active Substance: SODIUM OXYBATE
     Dosage: 2.25 G BID ,500MG/ML
     Route: 048
     Dates: start: 201307, end: 2013
  2. LAMICTAL [Concomitant]
     Active Substance: LAMOTRIGINE
     Indication: PRODUCT USED FOR UNKNOWN INDICATION
     Dosage: UNK
  3. ANBESOL REGULAR STRENGTH GEL [Concomitant]
     Active Substance: BENZOCAINE
     Indication: NONINFECTIVE GINGIVITIS
     Dosage: UNK
  4. FENTANYL. [Concomitant]
     Active Substance: FENTANYL
     Indication: PAIN
     Dosage: UNK
  5. PHENERGAN [Concomitant]
     Active Substance: PROMETHAZINE HYDROCHLORIDE
     Indication: NAUSEA
     Dosage: UNK
  6. XANAX [Concomitant]
     Active Substance: ALPRAZOLAM
     Indication: PRODUCT USED FOR UNKNOWN INDICATION
     Dosage: UNK
  7. XYREM [Suspect]
     Active Substance: SODIUM OXYBATE
     Dosage: TITRATED DOSE DOSE ADJUSTMENTS 500MG/ML
     Route: 048
     Dates: end: 2010
  8. XYREM [Suspect]
     Active Substance: SODIUM OXYBATE
     Indication: NARCOLEPSY
     Dosage: NIGHTLY
     Route: 048
     Dates: start: 20050404
  9. XYREM [Suspect]
     Active Substance: SODIUM OXYBATE
     Dosage: DOSE ADJUSTMENTS 500MG/ML
     Route: 048
     Dates: start: 2013, end: 2013
  10. XYREM [Suspect]
     Active Substance: SODIUM OXYBATE
     Dosage: 4.5 G BID, 500MG/ML
     Route: 048
     Dates: start: 201310

REACTIONS (6)
  - Amnesia [Unknown]
  - Fall [Recovered/Resolved]
  - Multiple injuries [Recovered/Resolved]
  - Arnold-Chiari malformation [Recovering/Resolving]
  - Memory impairment [Not Recovered/Not Resolved]
  - Decompressive craniectomy [Recovered/Resolved]

NARRATIVE: CASE EVENT DATE: 2006
